FAERS Safety Report 5336695-8 (Version None)
Quarter: 2007Q2

REPORT INFORMATION
  Report Type: 
  Country: None (occurrence: None)
  Receive Date: 20070529
  Receipt Date: 20070516
  Transmission Date: 20071010
  Serious: Yes (Other)
  Sender: FDA-Public Use
  Company Number: US-AMGEN-STX223095

PATIENT
  Sex: Male
  Weight: 93.2 kg

DRUGS (3)
  1. ENBREL [Suspect]
     Indication: PSORIASIS
     Route: 058
     Dates: start: 20070502
  2. DOVONEX [Concomitant]
     Dates: start: 20060330
  3. CLOBETASOL PROPIONATE [Concomitant]
     Dates: start: 20060330

REACTIONS (2)
  - HEAD INJURY [None]
  - SYNCOPE VASOVAGAL [None]
